FAERS Safety Report 8996306 (Version 1)
Quarter: 2013Q1

REPORT INFORMATION
  Report Type: Spontaneous
  Country: US (occurrence: US)
  Receive Date: 20130103
  Receipt Date: 20130103
  Transmission Date: 20140127
  Serious: Yes (Hospitalization)
  Sender: FDA-Public Use
  Company Number: US-AMGEN-USASP2012083688

PATIENT
  Sex: 0

DRUGS (3)
  1. NEULASTA [Suspect]
     Indication: NEUTROPENIA
     Dosage: UNK
  2. CARBOPLATIN [Concomitant]
     Dosage: UNK
  3. ETOPOSIDE [Concomitant]
     Dosage: UNK

REACTIONS (1)
  - Febrile neutropenia [Unknown]
